FAERS Safety Report 15148759 (Version 1)
Quarter: 2018Q3

REPORT INFORMATION
  Report Type: Spontaneous
  Country: US (occurrence: US)
  Receive Date: 20180619
  Receipt Date: 20180619
  Transmission Date: 20181010
  Serious: No
  Sender: FDA-Public Use
  Company Number: None

PATIENT
  Sex: Female

DRUGS (2)
  1. IBRANCE [Suspect]
     Active Substance: PALBOCICLIB
     Indication: METASTASES TO BONE
     Dosage: 125 MG DAILY FOR 21 DAYS OF EVERY 28?DAY CYCLE BY MOUTH
     Route: 048
     Dates: start: 20180501
  2. IBRANCE [Suspect]
     Active Substance: PALBOCICLIB
     Indication: BREAST CANCER FEMALE
     Dosage: 125 MG DAILY FOR 21 DAYS OF EVERY 28?DAY CYCLE BY MOUTH
     Route: 048
     Dates: start: 20180501

REACTIONS (4)
  - Nausea [None]
  - Drug dose omission [None]
  - Malaise [None]
  - Headache [None]
